FAERS Safety Report 5613948-7 (Version None)
Quarter: 2008Q1

REPORT INFORMATION
  Report Type: 
  Country: None (occurrence: None)
  Receive Date: 20080205
  Receipt Date: 20080125
  Transmission Date: 20080703
  Serious: Yes (Hospitalization)
  Sender: FDA-Public Use
  Company Number: US-ROCHE-543206

PATIENT
  Age: 9 Year
  Sex: Female

DRUGS (2)
  1. TAMIFLU [Suspect]
     Route: 065
  2. PSEUDOEPHEDRINE HCL [Concomitant]
     Dosage: RECEIVED ^1/3 OF A THERAPEUTIC DOSE^

REACTIONS (1)
  - DELIRIUM [None]
